FAERS Safety Report 8512955-4 (Version None)
Quarter: 2012Q3

REPORT INFORMATION
  Report Type: 
  Country: None (occurrence: None)
  Receive Date: 20120716
  Receipt Date: 20120628
  Transmission Date: 20120928
  Serious: Yes (Life-Threatening, Hospitalization)
  Sender: FDA-Public Use
  Company Number: IN-MSD-2012SP033123

PATIENT
  Age: 60 Year
  Sex: Female
  Weight: 55 kg

DRUGS (6)
  1. TEMODAR [Suspect]
     Indication: BRAIN NEOPLASM
     Dosage: 100 MG, QD
     Route: 065
     Dates: start: 20120507, end: 20120522
  2. TEMODAR [Suspect]
     Dosage: 100 MG, QD
     Route: 065
     Dates: start: 20120604
  3. CEFIXIME [Concomitant]
     Indication: PRODUCT USED FOR UNKNOWN INDICATION
     Dosage: UPDATE (29JUN2012)
     Route: 065
  4. TEMODAR [Suspect]
     Dosage: 100 MG, QD
     Route: 065
     Dates: start: 20120530
  5. EMESET [Concomitant]
     Indication: PRODUCT USED FOR UNKNOWN INDICATION
     Dosage: UPDATE (29JUN2012):
     Route: 065
  6. OFLOXACIN [Concomitant]
     Indication: PRODUCT USED FOR UNKNOWN INDICATION
     Dosage: UPDATE (29JUN2012)
     Route: 065

REACTIONS (7)
  - CONJUNCTIVAL OEDEMA [None]
  - TYPHOID FEVER [None]
  - RASH [None]
  - PRESYNCOPE [None]
  - BRONCHOSPASM [None]
  - ANAPHYLACTIC REACTION [None]
  - BLOOD PRESSURE DECREASED [None]
